FAERS Safety Report 6962836-2 (Version None)
Quarter: 2010Q3

REPORT INFORMATION
  Report Type: 
  Country: None (occurrence: None)
  Receive Date: 20100823
  Receipt Date: 20100604
  Transmission Date: 20110219
  Serious: No
  Sender: FDA-Public Use
  Company Number: 013231

PATIENT
  Sex: Female

DRUGS (2)
  1. CIMZIA [Suspect]
     Indication: CROHN'S DISEASE
     Dosage: 400 MG 1X/MONTH SUBCUTANEOUS, 200 MG QD SUBCUTANEOUS
     Route: 058
     Dates: start: 20080611
  2. CIMZIA [Suspect]
     Indication: CROHN'S DISEASE
     Dosage: 400 MG 1X/MONTH SUBCUTANEOUS, 200 MG QD SUBCUTANEOUS
     Route: 058
     Dates: start: 20100602

REACTIONS (3)
  - DRUG DOSE OMISSION [None]
  - PAIN [None]
  - PRODUCT QUALITY ISSUE [None]
